FAERS Safety Report 4358119-X (Version None)
Quarter: 2004Q2

REPORT INFORMATION
  Report Type: 
  Country: None (occurrence: None)
  Receive Date: 20040511
  Receipt Date: 20030429
  Transmission Date: 20050107
  Serious: Yes (Hospitalization, Other)
  Sender: FDA-Public Use
  Company Number: 2004028900

PATIENT
  Age: 26 Year
  Sex: Male

DRUGS (4)
  1. ZELDOX (CAPSULES) (ZIPRASIDONE) [Suspect]
     Indication: SCHIZOPHRENIA
     Dosage: 160 MG (80 MG, 2 IN 1 D), ORAL
     Route: 048
     Dates: start: 20040201, end: 20040325
  2. PROTHIPENDYL HYDROCHLORIDE (PROTHIPENDYL HYDROCHLORIDE) [Concomitant]
  3. LORAZEPAM [Concomitant]
  4. SILYMARIN (SILYMARIN) [Concomitant]

REACTIONS (4)
  - DRUG ERUPTION [None]
  - INFLAMMATION [None]
  - OEDEMA PERIPHERAL [None]
  - PRURITUS [None]
